FAERS Safety Report 18068807 (Version 1)
Quarter: 2020Q3

REPORT INFORMATION
  Report Type: Spontaneous
  Country: US (occurrence: US)
  Receive Date: 20200725
  Receipt Date: 20200725
  Transmission Date: 20201103
  Serious: No
  Sender: FDA-Public Use
  Company Number: US-SHIRE-US202023589

PATIENT
  Age: 19 Year

DRUGS (1)
  1. VPRIV [Suspect]
     Active Substance: VELAGLUCERASE ALFA
     Indication: GAUCHER^S DISEASE
     Dosage: 26 INTERNATIONAL UNIT
     Route: 042
     Dates: start: 20100418

REACTIONS (1)
  - Gaucher^s disease [Unknown]

NARRATIVE: CASE EVENT DATE: 20200601
